FAERS Safety Report 7360626-2 (Version None)
Quarter: 2011Q1

REPORT INFORMATION
  Report Type: 
  Country: None (occurrence: None)
  Receive Date: 20110318
  Receipt Date: 20100820
  Transmission Date: 20110831
  Serious: Yes (Hospitalization)
  Sender: FDA-Public Use
  Company Number: US-BAYER-200937960NA

PATIENT
  Sex: Female
  Weight: 64 kg

DRUGS (21)
  1. SYNTHROID [Concomitant]
     Indication: AUTOIMMUNE THYROIDITIS
     Dosage: 0.125 MG (DAILY DOSE), , ORAL
     Route: 048
  2. SEROQUEL [Concomitant]
     Indication: INSOMNIA
     Dosage: 200 MG (DAILY DOSE), , ORAL
     Route: 048
  3. YAZ [Suspect]
     Indication: PREMENSTRUAL SYNDROME
  4. NORCO [Concomitant]
     Dosage: 5MG-325MG Q6-8H AS NEEDED
     Route: 048
  5. YAZ [Suspect]
     Indication: MENSTRUAL DISORDER
  6. CYTOMEL [Concomitant]
     Indication: HYPOTHYROIDISM
     Dosage: 5 ?G (DAILY DOSE), , ORAL
     Route: 048
  7. ROZEREM [Concomitant]
     Dosage: 8 MG (DAILY DOSE), , ORAL
     Route: 048
  8. WARFARIN SODIUM [Concomitant]
     Dosage: 7.5 MG (DAILY DOSE), ,
  9. BENADRYL [Concomitant]
     Dosage: 25 MG, AT BED TIME
     Route: 048
  10. PEPCID [Concomitant]
     Dosage: 20 MG, BID
  11. TIZANIDINE [Concomitant]
     Dosage: 4 MG (DAILY DOSE), , ORAL
     Route: 048
  12. YAZ [Suspect]
     Indication: CONTRACEPTION
     Dates: start: 20070427, end: 20090209
  13. YASMIN [Suspect]
     Indication: PREMENSTRUAL SYNDROME
  14. CARISOPRODOL [Concomitant]
     Dosage: 350 MG (DAILY DOSE), , ORAL
     Route: 048
  15. THYROID TAB [Concomitant]
     Dosage: 15 MG (DAILY DOSE), , ORAL
     Route: 048
  16. METOPROLOL TARTRATE [Concomitant]
     Dosage: 50 MG (DAILY DOSE), BID,
  17. YASMIN [Suspect]
     Indication: CONTRACEPTION
     Dates: start: 20090507, end: 20091021
  18. YASMIN [Suspect]
     Indication: MENSTRUAL DISORDER
  19. HYDROCODONE BITARTRATE AND ACETAMINOPHEN [Concomitant]
     Dosage: 500 MG (DAILY DOSE), , ORAL
     Route: 048
  20. LIOTHYRONINE SODIUM [Concomitant]
     Dosage: 5 ?G (DAILY DOSE), , ORAL
     Route: 048
  21. SYNTHROID [Concomitant]
     Indication: HYPOTHYROIDISM

REACTIONS (4)
  - RESPIRATORY ALKALOSIS [None]
  - SINUS TACHYCARDIA [None]
  - HYPOKALAEMIA [None]
  - PULMONARY EMBOLISM [None]
